FAERS Safety Report 5644828-9 (Version None)
Quarter: 2008Q1

REPORT INFORMATION
  Report Type: 
  Country: None (occurrence: None)
  Receive Date: 20080229
  Receipt Date: 20070827
  Transmission Date: 20080703
  Serious: No
  Sender: FDA-Public Use
  Company Number: A0676665A

PATIENT
  Age: 73 Year
  Sex: Female

DRUGS (3)
  1. VALTREX [Suspect]
     Indication: GENITAL HERPES
     Route: 048
     Dates: start: 20060914, end: 20070801
  2. MAO INHIBITORS [Concomitant]
  3. COZAAR [Concomitant]
     Dosage: 50MG PER DAY

REACTIONS (1)
  - BLOOD PRESSURE INCREASED [None]
